FAERS Safety Report 4508359-1 (Version None)
Quarter: 2004Q4

REPORT INFORMATION
  Report Type: 
  Country: None (occurrence: None)
  Receive Date: 20041123
  Receipt Date: 20040119
  Transmission Date: 20050328
  Serious: No
  Sender: FDA-Public Use
  Company Number: US-GLAXOSMITHKLINE-A0493947A

PATIENT
  Age: 58 Year
  Sex: Female

DRUGS (10)
  1. WELLBUTRIN [Suspect]
     Indication: DEPRESSION
     Dosage: 150MG PER DAY
     Route: 048
  2. PAXIL [Suspect]
     Indication: DEPRESSION
     Route: 048
  3. CELEBREX [Concomitant]
  4. ALLEGRA [Concomitant]
  5. MULTI-VITAMIN [Concomitant]
  6. CALCIUM SUPPLEMENT [Concomitant]
  7. VITAMIN E [Concomitant]
  8. SIMVASTATIN [Concomitant]
  9. PREMPRO [Concomitant]
  10. SLEEP AID [Concomitant]
     Route: 048

REACTIONS (3)
  - INSOMNIA [None]
  - MENTAL DISORDER [None]
  - SENSORY DISTURBANCE [None]
